FAERS Safety Report 19478039 (Version 1)
Quarter: 2021Q2

REPORT INFORMATION
  Report Type: Spontaneous
  Country: CN (occurrence: CN)
  Receive Date: 20210630
  Receipt Date: 20210630
  Transmission Date: 20210717
  Serious: Yes (Other)
  Sender: FDA-Public Use
  Company Number: CN-PFIZER INC-2021738913

PATIENT
  Age: 7 Month
  Sex: Female
  Weight: 6.1 kg

DRUGS (2)
  1. VIAGRA [Suspect]
     Active Substance: SILDENAFIL CITRATE
     Dosage: 3 MG, 2X/DAY
     Route: 048
     Dates: start: 20210511, end: 20210512
  2. VIAGRA [Suspect]
     Active Substance: SILDENAFIL CITRATE
     Indication: SYMPTOMATIC TREATMENT
     Dosage: 3 MG, 3X/DAY
     Route: 048
     Dates: start: 20210509, end: 20210510

REACTIONS (3)
  - Off label use [Unknown]
  - Product use issue [Unknown]
  - Heart rate increased [Recovering/Resolving]

NARRATIVE: CASE EVENT DATE: 20210509
